FAERS Safety Report 5851604-0 (Version None)
Quarter: 2008Q3

REPORT INFORMATION
  Report Type: 
  Country: None (occurrence: None)
  Receive Date: 20080820
  Receipt Date: 20080805
  Transmission Date: 20090109
  Serious: Yes (Life-Threatening, Hospitalization, Disabling)
  Sender: FDA-Public Use
  Company Number: FR-GENENTECH-244892

PATIENT
  Sex: Female

DRUGS (11)
  1. MABTHERA [Suspect]
     Indication: B-CELL LYMPHOMA
     Dosage: 375 MG/M2, UNK
     Route: 042
     Dates: start: 20060412, end: 20061123
  2. NEUPOGEN [Suspect]
     Indication: NEUTROPENIA
     Dosage: UNK, UNK
     Route: 042
     Dates: start: 20061023, end: 20061030
  3. NEUPOGEN [Suspect]
     Dosage: UNK, UNK
     Dates: start: 20061201, end: 20061206
  4. NEUPOGEN [Suspect]
     Dosage: UNK, UNK
     Dates: start: 20061225, end: 20061227
  5. FLUDARA [Suspect]
     Indication: B-CELL LYMPHOMA
     Dosage: 25 MG/M2, UNK
     Route: 042
     Dates: start: 20060823, end: 20061123
  6. ENDOXAN [Suspect]
     Indication: B-CELL LYMPHOMA
     Dosage: 700 MG/M2, UNK
     Route: 042
     Dates: start: 20060412, end: 20061123
  7. BACTRIM [Concomitant]
     Indication: DRUG USE FOR UNKNOWN INDICATION
  8. ZELITREX [Concomitant]
     Indication: DRUG USE FOR UNKNOWN INDICATION
  9. XANAX [Concomitant]
     Indication: DRUG USE FOR UNKNOWN INDICATION
  10. STILNOX [Concomitant]
     Indication: DRUG USE FOR UNKNOWN INDICATION
  11. NEULASTA [Concomitant]
     Indication: DRUG USE FOR UNKNOWN INDICATION

REACTIONS (2)
  - LUNG DISORDER [None]
  - PULMONARY FIBROSIS [None]
